FAERS Safety Report 18791193 (Version 1)
Quarter: 2021Q1

REPORT INFORMATION
  Report Type: Spontaneous
  Country: IT (occurrence: IT)
  Receive Date: 20210126
  Receipt Date: 20210126
  Transmission Date: 20210419
  Serious: Yes (Hospitalization, Other)
  Sender: FDA-Public Use
  Company Number: IT-MILLICENT HOLDINGS LTD.-MILL20210009

PATIENT
  Age: 60 Year
  Sex: Female

DRUGS (2)
  1. INTRAROSA [Suspect]
     Active Substance: PRASTERONE
     Indication: ATROPHIC VULVOVAGINITIS
     Dosage: 1 PESSARY EVERY EVENING FOR 2 MONTHS, REDUCED TO 1 PESSARY 2/WEEK FOR LAST ONE AND A HALF MONTH
     Route: 067
     Dates: start: 2020, end: 202101
  2. DRUG FOR THYROID [Concomitant]
     Indication: THYROID DISORDER

REACTIONS (3)
  - Off label use [Unknown]
  - Inappropriate schedule of product administration [Unknown]
  - Deep vein thrombosis [Recovered/Resolved]

NARRATIVE: CASE EVENT DATE: 202101
